FAERS Safety Report 7080505-8 (Version None)
Quarter: 2010Q4

REPORT INFORMATION
  Report Type: 
  Country: None (occurrence: None)
  Receive Date: 20101025
  Receipt Date: 20101007
  Transmission Date: 20110411
  Serious: Yes (Disabling, Other)
  Sender: FDA-Public Use
  Company Number: DSA_44116_2010

PATIENT
  Sex: Male

DRUGS (1)
  1. WELLBUTRIN XL [Suspect]
     Indication: PRODUCT USED FOR UNKNOWN INDICATION
     Dosage: (DF)

REACTIONS (3)
  - DEAFNESS [None]
  - DEAFNESS NEUROSENSORY [None]
  - TINNITUS [None]
